FAERS Safety Report 6151111-4 (Version None)
Quarter: 2009Q2

REPORT INFORMATION
  Report Type: 
  Country: None (occurrence: None)
  Receive Date: 20090410
  Receipt Date: 20090330
  Transmission Date: 20091009
  Serious: Yes (Other)
  Sender: FDA-Public Use
  Company Number: GB-PFIZER INC-2009189979

PATIENT

DRUGS (2)
  1. SUNITINIB MALATE [Suspect]
     Indication: LUNG NEOPLASM MALIGNANT
     Dosage: 50 MG, 1X/DAY
     Route: 048
     Dates: start: 20090101
  2. SUNITINIB MALATE [Suspect]
     Indication: RENAL CANCER

REACTIONS (2)
  - CHEST PAIN [None]
  - DYSPNOEA [None]
